FAERS Safety Report 9009588 (Version 3)
Quarter: 2013Q3

REPORT INFORMATION
  Report Type: Spontaneous
  Country: BR (occurrence: BR)
  Receive Date: 20130110
  Receipt Date: 20130723
  Transmission Date: 20140515
  Serious: Yes (Other)
  Sender: FDA-Public Use
  Company Number: BR-AMGEN-BRASP2013001378

PATIENT
  Age: 55 Year
  Sex: Female
  Weight: 65 kg

DRUGS (11)
  1. ENBREL [Suspect]
     Indication: RHEUMATOID ARTHRITIS
     Dosage: 50 MG, 1X/WEEK
     Route: 058
     Dates: start: 2011
  2. ENBREL [Suspect]
     Dosage: 50 MG, 1X/WEEK
     Route: 065
     Dates: start: 2011
  3. IBUPROFEN [Concomitant]
     Indication: PAIN
     Dosage: UNSPECIFIED DOSE, WHEN FELT PAIN (AS NEEDED)
  4. METHOTREXATE [Concomitant]
     Dosage: 6 TABLETS OF 2.5MG (15 MG), ONCE WEEKLY
     Route: 048
  5. PARACETAMOL [Concomitant]
     Dosage: 500 MG, UNK
  6. FLUOXETINE [Concomitant]
     Dosage: 1 TABLET OF 20 MG, 1X/DAY (IN THE MORNING)
     Route: 048
     Dates: start: 2012
  7. ATENOLOL [Concomitant]
     Dosage: 1 TABLET OF 50 MG, 1X/DAY
     Route: 048
  8. CHLORTALIDONE [Concomitant]
     Dosage: 12.5 MG, 1X/DAY
     Route: 048
  9. CAFFEINE W/METAMIZOLE SODIUM/ORPHENADRINE CI. [Concomitant]
     Dosage: UNK
  10. ENALAPRIL [Concomitant]
     Dosage: 1 TABLET OF 10 MG, 1X/DAY
     Route: 048
  11. DIAZEPAM [Concomitant]
     Dosage: 1 TABLET OF 10 MG, ONCE AT NIGHT
     Route: 048

REACTIONS (8)
  - Joint swelling [Unknown]
  - Drug effect incomplete [Not Recovered/Not Resolved]
  - Cardiac arrest [Unknown]
  - Pain [Unknown]
  - Headache [Unknown]
  - Arthralgia [Unknown]
  - Insomnia [Not Recovered/Not Resolved]
  - Skin mass [Unknown]
